FAERS Safety Report 20400682 (Version 2)
Quarter: 2022Q1

REPORT INFORMATION
  Report Type: Spontaneous
  Country: US (occurrence: US)
  Receive Date: 20220131
  Receipt Date: 20220201
  Transmission Date: 20220423
  Serious: No
  Sender: FDA-Public Use
  Company Number: US-ABBVIE-21K-163-4080415-00

PATIENT
  Age: 64 Year
  Sex: Female
  Weight: 70.824 kg

DRUGS (4)
  1. HUMIRA [Suspect]
     Active Substance: ADALIMUMAB
     Indication: Crohn^s disease
     Route: 058
     Dates: start: 20200311
  2. HUMIRA [Suspect]
     Active Substance: ADALIMUMAB
     Indication: Colitis
  3. MODERNA COVID-19 VACCINE [Concomitant]
     Active Substance: ELASOMERAN
     Indication: COVID-19 immunisation
     Dosage: MODERNA
     Route: 030
     Dates: start: 20210315, end: 20210315
  4. MODERNA COVID-19 VACCINE [Concomitant]
     Active Substance: ELASOMERAN
     Dosage: MODERNA
     Route: 030
     Dates: start: 20210412, end: 20210412

REACTIONS (5)
  - Rectal fissure [Recovered/Resolved]
  - Rectal haemorrhage [Recovered/Resolved]
  - Fall [Recovered/Resolved]
  - Uterine cyst [Unknown]
  - Device use issue [Unknown]

NARRATIVE: CASE EVENT DATE: 20210301
